FAERS Safety Report 4964643-9 (Version None)
Quarter: 2006Q2

REPORT INFORMATION
  Report Type: 
  Country: None (occurrence: None)
  Receive Date: 20060406
  Receipt Date: 20051103
  Transmission Date: 20061013
  Serious: Yes (Other)
  Sender: FDA-Public Use
  Company Number: US-MERCK-0511USA00600

PATIENT
  Sex: Female
  Weight: 58 kg

DRUGS (2)
  1. VIOXX [Suspect]
     Indication: PAIN
     Route: 048
     Dates: start: 20030223
  2. VIOXX [Suspect]
     Indication: SWELLING
     Route: 048
     Dates: start: 20030223

REACTIONS (2)
  - DIARRHOEA [None]
  - NEOPLASM [None]
